FAERS Safety Report 20630395 (Version 1)
Quarter: 2022Q1

REPORT INFORMATION
  Report Type: Spontaneous
  Country: IS (occurrence: IS)
  Receive Date: 20220324
  Receipt Date: 20220324
  Transmission Date: 20220424
  Serious: Yes (Other)
  Sender: FDA-Public Use
  Company Number: IS-CELLTRION INC.-2021IS019086

PATIENT

DRUGS (3)
  1. INFLIXIMAB [Suspect]
     Active Substance: INFLIXIMAB
     Indication: Product used for unknown indication
     Dosage: UNK
     Route: 065
  2. INFLIXIMAB [Suspect]
     Active Substance: INFLIXIMAB
     Dosage: UNK (AFTER THE 5TH DOSE)
     Route: 065
  3. INFLIXIMAB [Suspect]
     Active Substance: INFLIXIMAB
     Dosage: UNK (5TH DOSE OF INFLIXIMAB)
     Route: 065

REACTIONS (5)
  - Cholestatic liver injury [Unknown]
  - Drug-induced liver injury [Unknown]
  - Lethargy [Unknown]
  - Primary biliary cholangitis [Unknown]
  - Pruritus [Unknown]
